FAERS Safety Report 5891909-0 (Version None)
Quarter: 2008Q3

REPORT INFORMATION
  Report Type: 
  Country: None (occurrence: None)
  Receive Date: 20080922
  Receipt Date: 20080911
  Transmission Date: 20090109
  Serious: Yes (Life-Threatening, Hospitalization)
  Sender: FDA-Public Use
  Company Number: IT-ELI_LILLY_AND_COMPANY-IT200809002804

PATIENT
  Sex: Female

DRUGS (2)
  1. ZYPREXA [Suspect]
     Indication: ANOREXIA NERVOSA
     Dosage: 2.5 MG, DAILY (1/D)
     Route: 048
     Dates: start: 20080820
  2. ZOLOFT [Concomitant]
     Indication: ANOREXIA NERVOSA
     Dosage: 25 MG, DAILY (1/D)
     Route: 048
     Dates: start: 20080820

REACTIONS (4)
  - CARDIAC ARREST [None]
  - HYPOKALAEMIA [None]
  - PRESYNCOPE [None]
  - VOMITING [None]
